FAERS Safety Report 20979063 (Version 2)
Quarter: 2022Q2

REPORT INFORMATION
  Report Type: Report from Study
  Country: ES (occurrence: ES)
  Receive Date: 20220619
  Receipt Date: 20220622
  Transmission Date: 20220721
  Serious: Yes (Death, Other)
  Sender: FDA-Public Use
  Company Number: ES-ABBVIE-22K-144-4421806-00

PATIENT
  Sex: Female
  Weight: 50 kg

DRUGS (2)
  1. CARBIDOPA\LEVODOPA [Suspect]
     Active Substance: CARBIDOPA\LEVODOPA
     Indication: Parkinson^s disease
     Route: 050
     Dates: start: 20170208
  2. CARBIDOPA\LEVODOPA [Suspect]
     Active Substance: CARBIDOPA\LEVODOPA

REACTIONS (11)
  - Death [Fatal]
  - Unresponsive to stimuli [Unknown]
  - Hyperthyroidism [Unknown]
  - Malabsorption [Unknown]
  - Gastrointestinal tract irritation [Unknown]
  - Fluid intake reduced [Unknown]
  - On and off phenomenon [Unknown]
  - Unevaluable event [Unknown]
  - Diarrhoea [Recovering/Resolving]
  - General physical health deterioration [Unknown]
  - Mobility decreased [Unknown]

NARRATIVE: CASE EVENT DATE: 20220101
